FAERS Safety Report 20785058 (Version 1)
Quarter: 2022Q2

REPORT INFORMATION
  Report Type: Spontaneous
  Country: US (occurrence: None)
  Receive Date: 20220503
  Receipt Date: 20220503
  Transmission Date: 20220721
  Serious: Yes (Disabling)
  Sender: FDA-Public Use
  Company Number: None

PATIENT
  Age: 43 Year
  Sex: Female
  Weight: 81 kg

DRUGS (8)
  1. HALDOL [Suspect]
     Active Substance: HALOPERIDOL
     Indication: Urinary tract infection
     Dosage: OTHER QUANTITY : 2 TABLET(S);?FREQUENCY : EVERY 12 HOURS;?
     Route: 048
     Dates: start: 202109, end: 20210914
  2. GEODON [Suspect]
     Active Substance: ZIPRASIDONE HYDROCHLORIDE\ZIPRASIDONE MESYLATE
     Indication: Cardiac disorder
     Dosage: OTHER QUANTITY : 1 INJECTION(S);?FREQUENCY : 3 TIMES A DAY;?
     Route: 030
     Dates: start: 20210823, end: 20210914
  3. SEROQUEL [Suspect]
     Active Substance: QUETIAPINE FUMARATE
  4. DEPAKOTE [Suspect]
     Active Substance: DIVALPROEX SODIUM
  5. Diclofenac 75 mg twice a day [Concomitant]
  6. Tronic device [Concomitant]
  7. Liquid B complex [Concomitant]
  8. COLLOIDAL SILVER [Concomitant]
     Active Substance: SILVER

REACTIONS (3)
  - Neuroleptic malignant syndrome [None]
  - Tardive dyskinesia [None]
  - Cardiac disorder [None]

NARRATIVE: CASE EVENT DATE: 20210904
